FAERS Safety Report 17027391 (Version 1)
Quarter: 2019Q4

REPORT INFORMATION
  Report Type: Spontaneous
  Country: US (occurrence: US)
  Receive Date: 20191009
  Receipt Date: 20191009
  Transmission Date: 20200122
  Serious: Yes (Other)
  Sender: FDA-Public Use
  Company Number: None

PATIENT
  Age: 80 Year
  Sex: Male
  Weight: 111.13 kg

DRUGS (1)
  1. JARDIANCE [Suspect]
     Active Substance: EMPAGLIFLOZIN
     Indication: DIABETES MELLITUS
     Dosage: ?          QUANTITY:1 DF DOSAGE FORM;?
     Route: 048
     Dates: start: 20190424, end: 20190720

REACTIONS (6)
  - Burning sensation [None]
  - Groin infection [None]
  - Dysuria [None]
  - Penile infection [None]
  - Skin odour abnormal [None]
  - Musculoskeletal discomfort [None]

NARRATIVE: CASE EVENT DATE: 20190520
